FAERS Safety Report 11340577 (Version 1)
Quarter: 2015Q3

REPORT INFORMATION
  Report Type: Spontaneous
  Country: US (occurrence: None)
  Receive Date: 20150803
  Receipt Date: 20150803
  Transmission Date: 20151125
  Serious: Yes (Death, Hospitalization, Other)
  Sender: FDA-Public Use
  Company Number: None

PATIENT
  Age: 60 Year
  Sex: Female
  Weight: 81.65 kg

DRUGS (1)
  1. PURE FIRE [Suspect]
     Active Substance: JWH-018
     Indication: DEPRESSION
     Dates: start: 20150731, end: 20150731

REACTIONS (1)
  - Myocardial infarction [None]
